FAERS Safety Report 4566564-2 (Version None)
Quarter: 2005Q1

REPORT INFORMATION
  Report Type: 
  Country: None (occurrence: None)
  Receive Date: 20050126
  Receipt Date: 20050120
  Transmission Date: 20050727
  Serious: Yes (Hospitalization)
  Sender: FDA-Public Use
  Company Number: 163-20785-04110255

PATIENT
  Age: 74 Year
  Sex: Male

DRUGS (7)
  1. THALOMID [Suspect]
     Indication: PROSTATE CANCER
     Dosage: 100 MG, DAILY, ORAL
     Route: 048
     Dates: start: 20041014, end: 20041111
  2. ZOCOR [Concomitant]
  3. METFORMIN HCL [Concomitant]
  4. IMDUR [Concomitant]
  5. CELEBREX [Concomitant]
  6. DURAGESIC [Concomitant]
  7. AVELOX [Concomitant]

REACTIONS (5)
  - DELUSION [None]
  - DEPRESSED LEVEL OF CONSCIOUSNESS [None]
  - MENTAL STATUS CHANGES [None]
  - PARANOIA [None]
  - SOMNOLENCE [None]
